FAERS Safety Report 5157051-1 (Version None)
Quarter: 2006Q4

REPORT INFORMATION
  Report Type: 
  Country: None (occurrence: None)
  Receive Date: 20061127
  Receipt Date: 20061115
  Transmission Date: 20070319
  Serious: Yes (Disabling, Other)
  Sender: FDA-Public Use
  Company Number: PHBS2006JP17958

PATIENT
  Age: 77 Year
  Sex: Female

DRUGS (1)
  1. AREDIA [Suspect]
     Indication: LYMPHOMA
     Route: 065

REACTIONS (2)
  - BONE TRIMMING [None]
  - OSTEONECROSIS [None]
